APPROVED DRUG PRODUCT: TERRA-CORTRIL
Active Ingredient: HYDROCORTISONE ACETATE; OXYTETRACYCLINE HYDROCHLORIDE
Strength: 1.5%;EQ 5MG BASE/ML
Dosage Form/Route: SUSPENSION;OPHTHALMIC
Application: A061016 | Product #001
Applicant: PFIZER LABORATORIES DIV PFIZER INC
Approved: Approved Prior to Jan 1, 1982 | RLD: No | RS: No | Type: DISCN